FAERS Safety Report 9155298 (Version 1)
Quarter: 2013Q1

REPORT INFORMATION
  Report Type: Spontaneous
  Country: US (occurrence: US)
  Receive Date: 20130311
  Receipt Date: 20130311
  Transmission Date: 20140127
  Serious: No
  Sender: FDA-Public Use
  Company Number: US-PFIZER INC-2013082051

PATIENT
  Age: 37 Year
  Sex: Female
  Weight: 96.1 kg

DRUGS (1)
  1. LYRICA [Suspect]
     Indication: FIBROMYALGIA
     Dosage: TWO CAPSULES OF 300MG IN THE MORNING AND TWO CAPSULES OF 300MG IN THE NIGHT
     Route: 048
     Dates: start: 201211

REACTIONS (2)
  - Weight increased [Unknown]
  - Hunger [Unknown]
